FAERS Safety Report 5511871-X (Version None)
Quarter: 2007Q4

REPORT INFORMATION
  Report Type: 
  Country: None (occurrence: None)
  Receive Date: 20071109
  Receipt Date: 20071029
  Transmission Date: 20080405
  Serious: Yes (Other)
  Sender: FDA-Public Use
  Company Number: GR-PFIZER INC-2007090689

PATIENT
  Age: 50 Year
  Sex: Female

DRUGS (2)
  1. MEDROL [Suspect]
     Indication: BRONCHITIS
     Route: 048
  2. ZITHROMAX [Concomitant]
     Indication: BRONCHITIS
     Route: 048

REACTIONS (3)
  - BLOOD GLUCOSE INCREASED [None]
  - HYPOTENSION [None]
  - VISION BLURRED [None]
